FAERS Safety Report 9060384 (Version 2)
Quarter: 2013Q2

REPORT INFORMATION
  Report Type: Spontaneous
  Country: AU (occurrence: AU)
  Receive Date: 20130212
  Receipt Date: 20130410
  Transmission Date: 20140414
  Serious: Yes (Life-Threatening, Hospitalization)
  Sender: FDA-Public Use
  Company Number: AU-B.I. PHARMACEUTICALS,INC./RIDGEFIELD-2013-AU-00106AU

PATIENT
  Age: 86 Year
  Sex: Female
  Weight: 50 kg

DRUGS (8)
  1. PRADAXA [Suspect]
     Indication: ATRIAL FIBRILLATION
     Dosage: 220 MG
     Dates: start: 20110908, end: 20121116
  2. PRADAXA [Suspect]
     Indication: TRANSIENT ISCHAEMIC ATTACK
     Dosage: 220 MG
  3. NEXIUM [Concomitant]
     Dosage: 80 MG
  4. EUTROXSIG [Concomitant]
  5. PREDNISONE [Concomitant]
  6. PLAQUENIL [Concomitant]
  7. SOTALOL [Concomitant]
     Dosage: 80 MG
  8. DIGOXIN [Concomitant]

REACTIONS (9)
  - Cardiac tamponade [Recovered/Resolved]
  - Pericardial haemorrhage [Recovered/Resolved]
  - Condition aggravated [Unknown]
  - Pneumonitis [Unknown]
  - Cough [Unknown]
  - Chest pain [Unknown]
  - Hypotension [Unknown]
  - Depressed level of consciousness [Unknown]
  - Thrombin time prolonged [Recovered/Resolved]
